FAERS Safety Report 7127028-5 (Version None)
Quarter: 2010Q4

REPORT INFORMATION
  Report Type: 
  Country: None (occurrence: None)
  Receive Date: 20101129
  Receipt Date: 20100106
  Transmission Date: 20110411
  Serious: No
  Sender: FDA-Public Use
  Company Number: US-PFIZER INC-2010002763

PATIENT
  Sex: Male
  Weight: 90.7 kg

DRUGS (1)
  1. VIAGRA [Suspect]
     Indication: PENIS DISORDER
     Dosage: 200 MG, SINGLE
     Route: 048
     Dates: start: 20100105

REACTIONS (4)
  - COUGH [None]
  - DIZZINESS [None]
  - DYSPEPSIA [None]
  - NAUSEA [None]
